FAERS Safety Report 6543778-3 (Version None)
Quarter: 2010Q1

REPORT INFORMATION
  Report Type: 
  Country: None (occurrence: None)
  Receive Date: 20100120
  Receipt Date: 20090611
  Transmission Date: 20100710
  Serious: No
  Sender: FDA-Public Use
  Company Number: US-BRISTOL-MYERS SQUIBB COMPANY-14659809

PATIENT
  Sex: Female

DRUGS (3)
  1. CISPLATIN [Suspect]
     Dosage: CYCLE 2
  2. PACLITAXEL [Suspect]
     Dosage: CYCLE 2
  3. CHEMOTHERAPY [Suspect]
     Dosage: CYCLE 2

REACTIONS (1)
  - TREMOR [None]
